FAERS Safety Report 16046466 (Version 1)
Quarter: 2019Q1

REPORT INFORMATION
  Report Type: Spontaneous
  Country: US (occurrence: US)
  Receive Date: 20190207
  Receipt Date: 20190207
  Transmission Date: 20190418
  Serious: No
  Sender: FDA-Public Use
  Company Number: None

PATIENT
  Age: 63 Year
  Sex: Female

DRUGS (1)
  1. COPAXONE [Suspect]
     Active Substance: GLATIRAMER ACETATE
     Dosage: ?          OTHER
     Route: 058
     Dates: start: 20160502

REACTIONS (4)
  - Groin pain [None]
  - Injection related reaction [None]
  - Injection site reaction [None]
  - Injection site coldness [None]

NARRATIVE: CASE EVENT DATE: 20190207
